FAERS Safety Report 6821029-X (Version None)
Quarter: 2010Q3

REPORT INFORMATION
  Report Type: 
  Country: None (occurrence: None)
  Receive Date: 20100707
  Receipt Date: 20070928
  Transmission Date: 20110219
  Serious: Yes (Other)
  Sender: FDA-Public Use
  Company Number: US-PFIZER INC-2007082171

PATIENT
  Sex: Female
  Weight: 75.8 kg

DRUGS (1)
  1. ZOLOFT [Suspect]
     Indication: DEPRESSION
     Dates: start: 19980101

REACTIONS (3)
  - ABNORMAL DREAMS [None]
  - DEREALISATION [None]
  - HALLUCINATION [None]
